FAERS Safety Report 7624044-1 (Version None)
Quarter: 2011Q3

REPORT INFORMATION
  Report Type: 
  Country: None (occurrence: None)
  Receive Date: 20110720
  Receipt Date: 20110404
  Transmission Date: 20111222
  Serious: Yes (Hospitalization, Disabling, Other)
  Sender: FDA-Public Use
  Company Number: US-SANOFI-AVENTIS-2011SA020145

PATIENT
  Age: 90 Year
  Sex: Male

DRUGS (2)
  1. ALL OTHER THERAPEUTIC PRODUCTS [Concomitant]
  2. AMBIEN [Suspect]
     Route: 048
     Dates: start: 20110328, end: 20110328

REACTIONS (12)
  - MEMORY IMPAIRMENT [None]
  - ABNORMAL BEHAVIOUR [None]
  - AMNESIA [None]
  - ANXIETY [None]
  - AGITATION [None]
  - COORDINATION ABNORMAL [None]
  - THINKING ABNORMAL [None]
  - AGGRESSION [None]
  - HALLUCINATION [None]
  - CATHETER SITE HAEMATOMA [None]
  - MENTAL STATUS CHANGES [None]
  - CONFUSIONAL STATE [None]
